FAERS Safety Report 18054215 (Version 1)
Quarter: 2020Q3

REPORT INFORMATION
  Report Type: Spontaneous
  Country: US (occurrence: US)
  Receive Date: 20200721
  Receipt Date: 20200721
  Transmission Date: 20201103
  Serious: No
  Sender: FDA-Public Use
  Company Number: None

PATIENT
  Age: 56 Year
  Sex: Female

DRUGS (1)
  1. ACTHAR [Suspect]
     Active Substance: CORTICOTROPIN
     Dosage: ?          OTHER STRENGTH:80U/ML;?
     Route: 058
     Dates: start: 202007

REACTIONS (5)
  - Mouth swelling [None]
  - Dyspnoea [None]
  - Lip swelling [None]
  - Fluid retention [None]
  - Bladder dysfunction [None]

NARRATIVE: CASE EVENT DATE: 20200721
